FAERS Safety Report 22005183 (Version 2)
Quarter: 2023Q1

REPORT INFORMATION
  Report Type: Spontaneous
  Country: US (occurrence: US)
  Receive Date: 20230217
  Receipt Date: 20230223
  Transmission Date: 20230418
  Serious: Yes (Disabling)
  Sender: FDA-Public Use
  Company Number: US-GILEAD-2023-0617071

PATIENT
  Age: 54 Year
  Sex: Male

DRUGS (1)
  1. EPCLUSA [Suspect]
     Active Substance: SOFOSBUVIR\VELPATASVIR
     Indication: Product used for unknown indication
     Route: 065

REACTIONS (2)
  - Back pain [Recovered/Resolved]
  - Musculoskeletal disorder [Unknown]

NARRATIVE: CASE EVENT DATE: 20230215
